FAERS Safety Report 6288282-5 (Version None)
Quarter: 2009Q3

REPORT INFORMATION
  Report Type: 
  Country: None (occurrence: None)
  Receive Date: 20090729
  Receipt Date: 20090716
  Transmission Date: 20100115
  Serious: Yes (Death)
  Sender: FDA-Public Use
  Company Number: JP-PFIZER INC-2009235146

PATIENT
  Age: 78 Year

DRUGS (15)
  1. LINEZOLID [Suspect]
     Indication: SEPSIS
     Dosage: 600 MG, 2X/DAY
     Dates: start: 20090416
  2. LINEZOLID [Suspect]
     Indication: PNEUMONIA
  3. PANSPORIN [Concomitant]
  4. HABEKACIN [Concomitant]
  5. VANCOMYCIN HYDROCHLORIDE [Concomitant]
  6. DALACIN-S [Concomitant]
     Dates: start: 20090412, end: 20090503
  7. MICAFUNGIN SODIUM [Concomitant]
     Dates: start: 20090418, end: 20090517
  8. MEROPEN [Concomitant]
     Dates: start: 20090424, end: 20090510
  9. DIPRIVAN [Concomitant]
     Dates: start: 20090412, end: 20090513
  10. TAKEPRON [Concomitant]
     Dates: start: 20090420, end: 20090516
  11. DOPAMINE HYDROCHLORIDE [Concomitant]
     Dates: start: 20090412, end: 20090516
  12. NORADRENALINE [Concomitant]
     Dates: start: 20090412, end: 20090516
  13. ELASPOL [Concomitant]
     Dates: start: 20090412, end: 20090511
  14. DILTIAZEM HYDROCHLORIDE [Concomitant]
     Dates: start: 20090417, end: 20090509
  15. HUMULIN R [Concomitant]
     Dates: start: 20090414, end: 20090516

REACTIONS (1)
  - PNEUMONIA [None]
